FAERS Safety Report 9834397 (Version 1)
Quarter: 2014Q1

REPORT INFORMATION
  Report Type: Spontaneous
  Country: JP (occurrence: JP)
  Receive Date: 20140122
  Receipt Date: 20140122
  Transmission Date: 20141002
  Serious: Yes (Other)
  Sender: FDA-Public Use
  Company Number: JP-ASTRAZENECA-2014SE03781

PATIENT
  Age: 82 Year
  Sex: Male

DRUGS (1)
  1. OMEPRAL [Suspect]
     Route: 048
     Dates: start: 201107, end: 201109

REACTIONS (2)
  - Spondylitis [Unknown]
  - Toxic epidermal necrolysis [Unknown]
